FAERS Safety Report 20701923 (Version 2)
Quarter: 2022Q2

REPORT INFORMATION
  Report Type: Report from Study
  Country: ES (occurrence: ES)
  Receive Date: 20220412
  Receipt Date: 20220426
  Transmission Date: 20220721
  Serious: Yes (Other)
  Sender: FDA-Public Use
  Company Number: ES-ROCHE-3036313

PATIENT
  Age: 57 Year
  Sex: Female

DRUGS (6)
  1. TRASTUZUMAB [Suspect]
     Active Substance: TRASTUZUMAB
     Indication: Breast cancer
     Dosage: 8 MILLIGRAM/KILOGRAM,LOADING DOSE THEN 6 MG/KG
     Route: 041
  2. TRASTUZUMAB [Suspect]
     Active Substance: TRASTUZUMAB
     Dosage: 451 MILLIGRAM, Q3W (LOADING DOSE THEN 6 MG/KG)
     Route: 042
     Dates: start: 20201014, end: 20201014
  3. CARBOPLATIN [Suspect]
     Active Substance: CARBOPLATIN
     Indication: Product used for unknown indication
     Dosage: 246 MILLIGRAM, QD (LAST DOSE BEFORE SAE)
     Route: 042
     Dates: start: 20201014, end: 20201014
  4. TAXOL [Suspect]
     Active Substance: PACLITAXEL
     Indication: Product used for unknown indication
     Dosage: 139 MILLIGRAM, QD (LAST DOSE BEFORE SAE)
     Route: 042
     Dates: start: 20201014, end: 20201014
  5. ATEZOLIZUMAB [Concomitant]
     Active Substance: ATEZOLIZUMAB
     Indication: HER2 positive breast cancer
     Dosage: 1200 MILLIGRAM (LAST DOSE BEFORE SAE)
     Route: 041
     Dates: start: 20200812, end: 20201014
  6. PERTUZUMAB [Concomitant]
     Active Substance: PERTUZUMAB
     Indication: HER2 positive breast cancer
     Dosage: 840 MILLIGRAM, QD (LAST DOSE BEFORE SAE)
     Route: 042
     Dates: start: 20201014, end: 20201014

REACTIONS (3)
  - Feeling cold [Recovered/Resolved]
  - Chills [Recovered/Resolved]
  - Infusion related reaction [Recovered/Resolved]

NARRATIVE: CASE EVENT DATE: 20201014
